FAERS Safety Report 5855794-5 (Version None)
Quarter: 2008Q3

REPORT INFORMATION
  Report Type: 
  Country: None (occurrence: None)
  Receive Date: 20080825
  Receipt Date: 20080422
  Transmission Date: 20090109
  Serious: No
  Sender: FDA-Public Use
  Company Number: US-KINGPHARMUSA00001-K200800484

PATIENT

DRUGS (8)
  1. SEPTRA [Suspect]
     Indication: URINARY TRACT INFECTION
     Route: 048
     Dates: start: 20080229, end: 20080301
  2. NICOTINE POLACRILEX [Suspect]
     Indication: NICOTINE DEPENDENCE
     Dosage: 5 PIECES, QD
     Route: 002
     Dates: start: 20080315
  3. NICOTINE POLACRILEX [Suspect]
     Dosage: 10-15 PIECES , QD
     Route: 002
     Dates: start: 20020101, end: 20080314
  4. BACTRIM [Suspect]
     Indication: URINARY TRACT INFECTION
     Route: 048
     Dates: start: 20080301, end: 20080301
  5. MACROBID                           /00024401/ [Suspect]
     Indication: URINARY TRACT INFECTION
     Route: 048
     Dates: start: 20080301, end: 20080301
  6. BLOOD PRESSURE PILL [Concomitant]
     Indication: BLOOD PRESSURE
  7. CHOLESTEROL PILL [Concomitant]
     Indication: BLOOD CHOLESTEROL
  8. PREVACID [Concomitant]

REACTIONS (2)
  - DIARRHOEA [None]
  - FUNGAL INFECTION [None]
